FAERS Safety Report 20365833 (Version 1)
Quarter: 2022Q1

REPORT INFORMATION
  Report Type: Spontaneous
  Country: FR (occurrence: FR)
  Receive Date: 20220123
  Receipt Date: 20220123
  Transmission Date: 20220423
  Serious: Yes (Other)
  Sender: FDA-Public Use
  Company Number: FR-LUPIN PHARMACEUTICALS INC.-2022-00663

PATIENT
  Age: 48 Year
  Sex: Female

DRUGS (5)
  1. RIFAMPIN [Interacting]
     Active Substance: RIFAMPIN
     Indication: Mycobacterial infection
     Dosage: UNK
     Route: 065
  2. APREMILAST [Interacting]
     Active Substance: APREMILAST
     Indication: Behcet^s syndrome
     Dosage: 30 MILLIGRAM
     Route: 065
  3. COLCHICINE [Concomitant]
     Active Substance: COLCHICINE
     Indication: Behcet^s syndrome
     Dosage: 2 MILLIGRAM, QD
     Route: 065
  4. ISONIAZID [Concomitant]
     Active Substance: ISONIAZID
     Indication: Mycobacterial infection
     Dosage: UNK
     Route: 065
  5. ETHAMBUTOL [Concomitant]
     Active Substance: ETHAMBUTOL HYDROCHLORIDE
     Indication: Mycobacterial infection
     Dosage: UNK
     Route: 065

REACTIONS (2)
  - Mouth ulceration [Recovered/Resolved]
  - Drug interaction [Unknown]
